FAERS Safety Report 5638334-5 (Version None)
Quarter: 2008Q1

REPORT INFORMATION
  Report Type: 
  Country: None (occurrence: None)
  Receive Date: 20080222
  Receipt Date: 20080212
  Transmission Date: 20080703
  Serious: Yes (Hospitalization)
  Sender: FDA-Public Use
  Company Number: GXJR2008JP01607

PATIENT
  Age: 57 Year
  Sex: Female

DRUGS (3)
  1. RIBAVIRIN [Suspect]
     Indication: HEPATITIS C
     Dosage: 600 MG
  2. INTRON A [Suspect]
     Indication: HEPATITIS C
     Dosage: 6000000 U
  3. PEGINTERFERON ALFA-2B (PEGINTERFERON ALFA-2B) [Suspect]
     Indication: HEPATITIS C
     Dosage: 80 UG

REACTIONS (15)
  - ABDOMINAL ABSCESS [None]
  - ABDOMINAL DISCOMFORT [None]
  - ABSCESS INTESTINAL [None]
  - ABSCESS RUPTURE [None]
  - APPENDICITIS [None]
  - COLONOSCOPY ABNORMAL [None]
  - CULTURE STOOL POSITIVE [None]
  - ENTEROCOCCAL INFECTION [None]
  - EPIGASTRIC DISCOMFORT [None]
  - ESCHERICHIA INFECTION [None]
  - GASTROENTERITIS BACTERIAL [None]
  - HAEMOGLOBIN DECREASED [None]
  - LOCALISED INTRAABDOMINAL FLUID COLLECTION [None]
  - PLATELET COUNT DECREASED [None]
  - PYREXIA [None]
